FAERS Safety Report 9826487 (Version 1)
Quarter: 2014Q1

REPORT INFORMATION
  Report Type: Spontaneous
  Country: US (occurrence: US)
  Receive Date: 20140117
  Receipt Date: 20140117
  Transmission Date: 20141002
  Serious: No
  Sender: FDA-Public Use
  Company Number: US-BIOGENIDEC-2014BI000468

PATIENT
  Age: 66 Year
  Sex: Male

DRUGS (5)
  1. TECFIDERA [Suspect]
     Indication: MULTIPLE SCLEROSIS
     Route: 048
     Dates: start: 201306
  2. ADVIL [Concomitant]
  3. ECOTRIN [Concomitant]
  4. XANAX [Concomitant]
  5. NEURONTIN [Concomitant]

REACTIONS (3)
  - Pain in extremity [Unknown]
  - Fall [Unknown]
  - Abdominal discomfort [Unknown]
